FAERS Safety Report 11177687 (Version 2)
Quarter: 2015Q3

REPORT INFORMATION
  Report Type: Spontaneous
  Country: US (occurrence: US)
  Receive Date: 20150610
  Receipt Date: 20150709
  Transmission Date: 20151125
  Serious: No
  Sender: FDA-Public Use
  Company Number: US-PFIZER INC-2015195520

PATIENT
  Age: 86 Year
  Sex: Female

DRUGS (4)
  1. ZANTAC [Concomitant]
     Active Substance: RANITIDINE HYDROCHLORIDE
     Indication: ABDOMINAL DISCOMFORT
     Dosage: 1 DF, 2X/DAY (150)
     Route: 048
     Dates: start: 20150325
  2. NITROSTAT [Suspect]
     Active Substance: NITROGLYCERIN
     Indication: ABDOMINAL PAIN UPPER
  3. NITROSTAT [Suspect]
     Active Substance: NITROGLYCERIN
     Indication: CHEST PAIN
     Dosage: 0.4 MG, AS NEEDED
     Route: 060
     Dates: start: 20150426
  4. XANAX [Concomitant]
     Active Substance: ALPRAZOLAM
     Indication: ANXIETY
     Dosage: 1 DF, 1X/DAY (0.25)
     Dates: start: 20150402

REACTIONS (4)
  - Glossodynia [Unknown]
  - Drug ineffective [Unknown]
  - Expired product administered [Unknown]
  - Paraesthesia oral [Unknown]
